FAERS Safety Report 5133616-8 (Version None)
Quarter: 2006Q4

REPORT INFORMATION
  Report Type: 
  Country: None (occurrence: None)
  Receive Date: 20061024
  Receipt Date: 20060322
  Transmission Date: 20070319
  Serious: No
  Sender: FDA-Public Use
  Company Number: US-AMGEN-US173487

PATIENT
  Sex: Female

DRUGS (10)
  1. SENSIPAR [Suspect]
     Indication: HYPERPARATHYROIDISM SECONDARY
     Route: 048
     Dates: start: 20051012
  2. NOVOLIN 70/30 [Concomitant]
  3. NPH INSULIN [Concomitant]
  4. GLYBURIDE [Concomitant]
  5. PLAVIX [Concomitant]
  6. NEXIUM [Concomitant]
  7. TOPROL-XL [Concomitant]
  8. AVAPRO [Concomitant]
  9. EVISTA [Concomitant]
  10. FUROSEMIDE [Concomitant]

REACTIONS (1)
  - BLOOD PARATHYROID HORMONE INCREASED [None]
